FAERS Safety Report 6616346-2 (Version None)
Quarter: 2010Q1

REPORT INFORMATION
  Report Type: 
  Country: None (occurrence: None)
  Receive Date: 20100226
  Receipt Date: 20100224
  Transmission Date: 20100710
  Serious: Yes (Death, Hospitalization, Other)
  Sender: FDA-Public Use
  Company Number: 2008SP020825

PATIENT
  Age: 69 Year
  Sex: Male
  Weight: 61 kg

DRUGS (16)
  1. INTRON A [Suspect]
     Indication: HEPATIC NEOPLASM MALIGNANT
     Dosage: 3 MIU; TIW; IA
     Route: 014
     Dates: start: 20080507, end: 20080602
  2. INTRON A [Suspect]
     Indication: HEPATIC NEOPLASM MALIGNANT
     Dosage: 3 MIU; TIW; IA
     Route: 014
     Dates: start: 20080606, end: 20080702
  3. INTRON A [Suspect]
     Indication: HEPATIC NEOPLASM MALIGNANT
     Dosage: 3 MIU; TIW; IA
     Route: 014
     Dates: start: 20080709, end: 20080801
  4. FLUOROURACIL [Concomitant]
  5. AMLODIPINE [Concomitant]
  6. CANDESARTAN CILEXETIL [Concomitant]
  7. URSO 250 [Concomitant]
  8. ACINON [Concomitant]
  9. TETRAMIDE [Concomitant]
  10. LENDORMIN [Concomitant]
  11. AMITRIPTYLINE HCL [Concomitant]
  12. HALCION [Concomitant]
  13. PAXIL [Concomitant]
  14. ZOLOFT [Concomitant]
  15. RISPERDAL [Concomitant]
  16. HIRNAMIN (LEVOMEPROMAZINE MALEATE) [Concomitant]

REACTIONS (8)
  - DELIRIUM [None]
  - ESCHERICHIA INFECTION [None]
  - HEPATIC CIRRHOSIS [None]
  - INTERSTITIAL LUNG DISEASE [None]
  - PNEUMONIA [None]
  - PULMONARY FIBROSIS [None]
  - RESPIRATORY FAILURE [None]
  - SEPSIS [None]
